FAERS Safety Report 5068041-1 (Version None)
Quarter: 2006Q3

REPORT INFORMATION
  Report Type: 
  Country: None (occurrence: None)
  Receive Date: 20060731
  Receipt Date: 20060717
  Transmission Date: 20061208
  Serious: Yes (Hospitalization, Other)
  Sender: FDA-Public Use
  Company Number: 2006090677

PATIENT
  Sex: Male
  Weight: 104.3273 kg

DRUGS (2)
  1. BEXTRA [Suspect]
     Indication: ARTHRITIS
     Dosage: 60 MG (20 MG, 3 IN 1 D)
     Dates: start: 20000101, end: 20040101
  2. CELEBREX [Suspect]
     Indication: ARTHRITIS
     Dosage: 2 OR 3 TIMES A DAY

REACTIONS (4)
  - ABDOMINAL PAIN UPPER [None]
  - ARTERIAL OCCLUSIVE DISEASE [None]
  - CEREBROVASCULAR ACCIDENT [None]
  - MYOCARDIAL INFARCTION [None]
